FAERS Safety Report 5132133-9 (Version None)
Quarter: 2006Q4

REPORT INFORMATION
  Report Type: 
  Country: None (occurrence: None)
  Receive Date: 20061017
  Receipt Date: 20061003
  Transmission Date: 20070319
  Serious: Yes (Hospitalization)
  Sender: FDA-Public Use
  Company Number: DMR-2006-00058

PATIENT
  Age: 56 Year
  Sex: Male
  Weight: 87.5442 kg

DRUGS (10)
  1. EVOXAC [Suspect]
     Indication: CONGENITAL SALIVARY GLAND ANOMALY
     Dosage: 90 MG (30 MG, 3 IN 1 D), PER ORAL; ^ A FEW MONTHS AGO ^
     Route: 048
  2. EVOXAC [Suspect]
     Indication: DRUG USE FOR UNKNOWN INDICATION
     Dosage: 90 MG (30 MG, 3 IN 1 D), PER ORAL; ^ A FEW MONTHS AGO ^
     Route: 048
  3. LISINOPRIL [Suspect]
     Dosage: 1990'S - STOPPED
  4. PRAZOSIN GITS [Concomitant]
  5. K-LAM                          (UNKNOWN) [Concomitant]
  6. BUSPAR [Concomitant]
  7. LOPID [Concomitant]
  8. CRESTOR [Concomitant]
  9. SULINDAC [Concomitant]
  10. GLUCOPHAGE [Concomitant]

REACTIONS (5)
  - ANGIONEUROTIC OEDEMA [None]
  - BRADYCARDIA [None]
  - CARDIAC DISORDER [None]
  - DRUG HYPERSENSITIVITY [None]
  - SINUS ARRHYTHMIA [None]
